FAERS Safety Report 5838831-3 (Version None)
Quarter: 2008Q3

REPORT INFORMATION
  Report Type: 
  Country: None (occurrence: None)
  Receive Date: 20080808
  Receipt Date: 20080801
  Transmission Date: 20090109
  Serious: Yes (Hospitalization, Other)
  Sender: FDA-Public Use
  Company Number: US-AMGEN-QUU299082

PATIENT
  Sex: Female

DRUGS (1)
  1. ENBREL [Suspect]
     Indication: RHEUMATOID ARTHRITIS
     Route: 058
     Dates: start: 20010101

REACTIONS (7)
  - ALOPECIA [None]
  - BREAST CANCER [None]
  - CATARACT [None]
  - DYSPEPSIA [None]
  - KNEE ARTHROPLASTY [None]
  - MOTOR DYSFUNCTION [None]
  - RASH ERYTHEMATOUS [None]
